FAERS Safety Report 6474190-3 (Version None)
Quarter: 2009Q4

REPORT INFORMATION
  Report Type: 
  Country: None (occurrence: None)
  Receive Date: 20091204
  Receipt Date: 20091126
  Transmission Date: 20100525
  Serious: Yes (Hospitalization, Other)
  Sender: FDA-Public Use
  Company Number: KR-PFIZER INC-2009289398

PATIENT
  Age: 48 Year
  Sex: Female

DRUGS (1)
  1. SUTENE [Suspect]
     Route: 048

REACTIONS (2)
  - INTERSTITIAL LUNG DISEASE [None]
  - METABOLIC ENCEPHALOPATHY [None]
